FAERS Safety Report 8130133-8 (Version None)
Quarter: 2012Q1

REPORT INFORMATION
  Report Type: 
  Country: None (occurrence: None)
  Receive Date: 20120210
  Receipt Date: 20120207
  Transmission Date: 20120608
  Serious: Yes (Hospitalization)
  Sender: FDA-Public Use
  Company Number: US-PFIZER INC-2010181067

PATIENT
  Sex: Female
  Weight: 79.4 kg

DRUGS (3)
  1. ELAVIL [Suspect]
     Dosage: 50 MG, QHS
     Route: 048
     Dates: end: 20120106
  2. NEURONTIN [Suspect]
     Indication: NEUROPATHY PERIPHERAL
     Dosage: 800 MG, 3X/DAY
     Dates: start: 20060101
  3. DICLOFENAC [Suspect]
     Dosage: 75 MG, 2X/DAY
     Route: 048
     Dates: end: 20120106

REACTIONS (3)
  - PAIN [None]
  - ASCITES [None]
  - OROPHARYNGEAL PAIN [None]
